FAERS Safety Report 24742844 (Version 1)
Quarter: 2024Q4

REPORT INFORMATION
  Report Type: Spontaneous
  Country: US (occurrence: US)
  Receive Date: 20241217
  Receipt Date: 20241217
  Transmission Date: 20250115
  Serious: Yes (Other)
  Sender: PFIZER
  Company Number: US-PFIZER INC-PV202400162686

PATIENT
  Age: 50 Year
  Sex: Female

DRUGS (1)
  1. LORBRENA [Suspect]
     Active Substance: LORLATINIB
     Indication: Non-small cell lung cancer metastatic
     Dosage: UNK

REACTIONS (5)
  - Spinal fracture [Unknown]
  - Oedema [Unknown]
  - Pain in extremity [Unknown]
  - Burning sensation [Unknown]
  - Weight increased [Unknown]
